FAERS Safety Report 7419974-X (Version None)
Quarter: 2011Q2

REPORT INFORMATION
  Report Type: 
  Country: None (occurrence: None)
  Receive Date: 20110413
  Receipt Date: 20110413
  Transmission Date: 20111010
  Serious: Yes (Disabling)
  Sender: FDA-Public Use
  Company Number: None

PATIENT
  Age: 52 Year
  Sex: Female
  Weight: 77.1115 kg

DRUGS (1)
  1. ARTICAINE HYDROCHLORIDE AND EPINEPHRINE BITARTRATE [Suspect]

REACTIONS (3)
  - HYPOAESTHESIA [None]
  - HEADACHE [None]
  - PAIN [None]
